FAERS Safety Report 5865315-9 (Version None)
Quarter: 2008Q3

REPORT INFORMATION
  Report Type: 
  Country: None (occurrence: None)
  Receive Date: 20080829
  Receipt Date: 20080818
  Transmission Date: 20090109
  Serious: Yes (Other)
  Sender: FDA-Public Use
  Company Number: US-MERCK-0804USA01001

PATIENT
  Age: 56 Year
  Sex: Male

DRUGS (7)
  1. COZAAR [Suspect]
     Route: 048
  2. METFORMIN HCL [Suspect]
     Route: 065
     Dates: start: 20060301
  3. PLAVIX [Suspect]
     Indication: ACUTE CORONARY SYNDROME
     Route: 048
     Dates: start: 20060301, end: 20080221
  4. LANTUS [Suspect]
     Route: 065
  5. ZETIA [Suspect]
     Route: 048
  6. CRESTOR [Suspect]
     Route: 065
  7. BYETTA [Concomitant]
     Route: 065

REACTIONS (2)
  - NEPHRITIS INTERSTITIAL [None]
  - PROTEINURIA [None]
